FAERS Safety Report 8050512-7 (Version None)
Quarter: 2012Q1

REPORT INFORMATION
  Report Type: 
  Country: None (occurrence: None)
  Receive Date: 20120117
  Receipt Date: 20120106
  Transmission Date: 20120608
  Serious: Yes (Hospitalization)
  Sender: FDA-Public Use
  Company Number: US-US-EMD SERONO, INC.-7060465

PATIENT
  Sex: Female
  Weight: 72 kg

DRUGS (4)
  1. REBIF [Suspect]
     Indication: PRODUCT USED FOR UNKNOWN INDICATION
     Route: 058
     Dates: end: 20100610
  2. REBIF [Suspect]
     Route: 058
  3. REBIF [Suspect]
     Route: 058
     Dates: start: 20110401
  4. REBIF [Suspect]
     Route: 058

REACTIONS (5)
  - MYALGIA [None]
  - MUSCULAR WEAKNESS [None]
  - FATIGUE [None]
  - PNEUMONIA [None]
  - INJECTION SITE ERYTHEMA [None]
